FAERS Safety Report 7338288-X (Version None)
Quarter: 2011Q1

REPORT INFORMATION
  Report Type: 
  Country: None (occurrence: None)
  Receive Date: 20110303
  Receipt Date: 20110303
  Transmission Date: 20110831
  Serious: No
  Sender: FDA-Public Use
  Company Number: None

PATIENT
  Age: 67 Year
  Sex: Male
  Weight: 97.7 kg

DRUGS (1)
  1. SIMVASTATIN [Suspect]
     Indication: ARTERIOSCLEROSIS
     Dosage: SIMVASTATIN 40MGM DAILY ORAL, SIMVASTATIN 20 MGM
     Route: 048
     Dates: start: 20080301

REACTIONS (2)
  - ARTHRALGIA [None]
  - NEUROPATHY PERIPHERAL [None]
